FAERS Safety Report 8533806 (Version 2)
Quarter: 2012Q4

REPORT INFORMATION
  Report Type: 
  Country: ES (occurrence: ES)
  Receive Date: 20120427
  Receipt Date: 20120821
  Transmission Date: 20130627
  Serious: Yes (Hospitalization, Other)
  Sender: FDA-Public Use
  Company Number: ES-ELI_LILLY_AND_COMPANY-ES201204006306

PATIENT
  Sex: Male

DRUGS (2)
  1. FORSTEO [Suspect]
     Dosage: UNK, unknown
     Route: 065
     Dates: start: 20110928, end: 201203
  2. FORSTEO [Suspect]
     Dosage: UNK, unknown
     Route: 065
     Dates: start: 20110928, end: 201203

REACTIONS (4)
  - Renal failure [Unknown]
  - Plasma cell myeloma [Unknown]
  - Blood calcium abnormal [Unknown]
  - Anaemia [Unknown]
